FAERS Safety Report 5345496-6 (Version None)
Quarter: 2007Q2

REPORT INFORMATION
  Report Type: 
  Country: None (occurrence: None)
  Receive Date: 20070430
  Receipt Date: 20070206
  Transmission Date: 20071010
  Serious: Yes (Other)
  Sender: FDA-Public Use
  Company Number: USEN-6Y6LB3

PATIENT
  Sex: 0

DRUGS (2)
  1. DURAPREP [Suspect]
     Indication: PREOPERATIVE CARE
     Dosage: 26 ML, TOPICAL SINGLE APPLICATION
     Route: 061
  2. KIMBERLY CLARK SURGICAL DRAPE [Concomitant]

REACTIONS (2)
  - HAEMATOMA [None]
  - SKIN REACTION [None]
